FAERS Safety Report 7012760-4 (Version None)
Quarter: 2010Q3

REPORT INFORMATION
  Report Type: 
  Country: None (occurrence: None)
  Receive Date: 20100924
  Receipt Date: 20100917
  Transmission Date: 20110219
  Serious: Yes (Life-Threatening, Disabling, Other)
  Sender: FDA-Public Use
  Company Number: A0868953A

PATIENT
  Age: 35 Year
  Sex: Male

DRUGS (2)
  1. FLOVENT [Suspect]
     Indication: ASTHMA
     Route: 055
     Dates: start: 20100612, end: 20100704
  2. PROAIR HFA [Concomitant]

REACTIONS (5)
  - ABASIA [None]
  - ASTHMA [None]
  - IMMOBILE [None]
  - PRODUCT QUALITY ISSUE [None]
  - PYREXIA [None]
